FAERS Safety Report 20526166 (Version 1)
Quarter: 2022Q1

REPORT INFORMATION
  Report Type: Spontaneous
  Country: JP (occurrence: JP)
  Receive Date: 20220228
  Receipt Date: 20220228
  Transmission Date: 20220423
  Serious: Yes (Other)
  Sender: FDA-Public Use
  Company Number: JP-PFIZER INC-202200322556

PATIENT

DRUGS (2)
  1. IBRANCE [Suspect]
     Active Substance: PALBOCICLIB
     Dosage: DOSE REDUCTION IN STAGE1
  2. IBRANCE [Suspect]
     Active Substance: PALBOCICLIB
     Dosage: DOSE REDUCTION IN STAGE2

REACTIONS (2)
  - Renal impairment [Unknown]
  - Neutrophil count decreased [Unknown]
